FAERS Safety Report 5531893-2 (Version None)
Quarter: 2007Q4

REPORT INFORMATION
  Report Type: 
  Country: None (occurrence: None)
  Receive Date: 20071203
  Receipt Date: 20071121
  Transmission Date: 20080405
  Serious: Yes (Hospitalization)
  Sender: FDA-Public Use
  Company Number: AT-ELI_LILLY_AND_COMPANY-AT200711003836

PATIENT
  Age: 77 Year
  Sex: Female

DRUGS (5)
  1. TERIPARATIDE [Suspect]
     Dosage: 20 UG, UNK
     Route: 058
     Dates: start: 20060801
  2. INHIBACE [Concomitant]
     Indication: DEHYDRATION
  3. VOLTAREN /00372303/ [Concomitant]
     Indication: PAIN
  4. SERACTIL [Concomitant]
     Indication: PAIN
  5. AMLODIPINE [Concomitant]
     Indication: HYPERTENSION

REACTIONS (4)
  - BURNING SENSATION [None]
  - GAIT DISTURBANCE [None]
  - INVESTIGATION [None]
  - PAIN IN EXTREMITY [None]
